FAERS Safety Report 11515814 (Version 1)
Quarter: 2015Q3

REPORT INFORMATION
  Report Type: Spontaneous
  Country: US (occurrence: US)
  Receive Date: 20150916
  Receipt Date: 20150916
  Transmission Date: 20151125
  Serious: Yes (Other)
  Sender: FDA-Public Use
  Company Number: US-SHIRE-US201511531

PATIENT
  Sex: Female
  Weight: 58.96 kg

DRUGS (2)
  1. LIALDA [Suspect]
     Active Substance: MESALAMINE
     Indication: INFLAMMATORY BOWEL DISEASE
     Dosage: 1.2 G, 1X/DAY:QD (WITH MEAL)
     Route: 048
     Dates: start: 2015, end: 2015
  2. LIALDA [Suspect]
     Active Substance: MESALAMINE
     Dosage: UNK, QOD
     Route: 048
     Dates: start: 2015

REACTIONS (5)
  - Nervousness [Unknown]
  - Inappropriate schedule of drug administration [Not Recovered/Not Resolved]
  - Haematochezia [Unknown]
  - Abdominal distension [Not Recovered/Not Resolved]
  - Product use issue [Not Recovered/Not Resolved]

NARRATIVE: CASE EVENT DATE: 2015
